FAERS Safety Report 16096505 (Version 1)
Quarter: 2019Q1

REPORT INFORMATION
  Report Type: Spontaneous
  Country: AT (occurrence: AT)
  Receive Date: 20190320
  Receipt Date: 20190320
  Transmission Date: 20190418
  Serious: Yes (Hospitalization)
  Sender: FDA-Public Use
  Company Number: AT-PFIZER INC-2019112885

PATIENT
  Age: 40 Year
  Sex: Female

DRUGS (2)
  1. HALCION [Suspect]
     Active Substance: TRIAZOLAM
     Dosage: 9 DF, UNK
     Route: 048
     Dates: start: 20170611, end: 20170611
  2. FRISIUM [Suspect]
     Active Substance: CLOBAZAM
     Dosage: 10 DF, UNK
     Route: 048
     Dates: start: 20170611, end: 20170611

REACTIONS (2)
  - Intentional overdose [Recovered/Resolved]
  - Extrasystoles [Recovered/Resolved]

NARRATIVE: CASE EVENT DATE: 20170611
